FAERS Safety Report 9422765 (Version 3)
Quarter: 2013Q3

REPORT INFORMATION
  Report Type: Spontaneous
  Country: US (occurrence: US)
  Receive Date: 20130726
  Receipt Date: 20130806
  Transmission Date: 20140515
  Serious: No
  Sender: FDA-Public Use
  Company Number: US-009507513-1307USA010152

PATIENT
  Sex: Female

DRUGS (1)
  1. COPPERTONE SPORT CONTINUOUS SPRAY SPF 70 [Suspect]
     Indication: PRODUCT USED FOR UNKNOWN INDICATION
     Dosage: UNK, UNKNOWN
     Route: 061
     Dates: start: 201303, end: 201304

REACTIONS (2)
  - Application site discolouration [Not Recovered/Not Resolved]
  - Hair colour changes [Not Recovered/Not Resolved]
